FAERS Safety Report 4667686-8 (Version None)
Quarter: 2005Q2

REPORT INFORMATION
  Report Type: 
  Country: None (occurrence: None)
  Receive Date: 20050520
  Receipt Date: 20050511
  Transmission Date: 20051028
  Serious: Yes (Hospitalization, Other)
  Sender: FDA-Public Use
  Company Number: GB-JNJFOC-20050503041

PATIENT
  Sex: Female
  Weight: 67 kg

DRUGS (10)
  1. REMICADE [Suspect]
     Route: 042
  2. METHOTREXATE [Concomitant]
  3. FOLIC ACID [Concomitant]
  4. ETORICOXIB [Concomitant]
  5. PREDNISOLONE [Concomitant]
  6. ATENOLOL [Concomitant]
  7. ZANIDIP [Concomitant]
  8. MEPTAZINOL [Concomitant]
  9. CO-DYDRAMOL [Concomitant]
  10. CO-DYDRAMOL [Concomitant]

REACTIONS (1)
  - APPENDICECTOMY [None]
